FAERS Safety Report 4887551-0 (Version None)
Quarter: 2006Q1

REPORT INFORMATION
  Report Type: 
  Country: None (occurrence: None)
  Receive Date: 20060118
  Receipt Date: 20051129
  Transmission Date: 20060701
  Serious: Yes (Other)
  Sender: FDA-Public Use
  Company Number: NL200601001015

PATIENT
  Age: 74 Year
  Sex: Female

DRUGS (5)
  1. FORSTEO(TERIPARATIDE UNKNOWN FORMULATION) [Suspect]
     Indication: OSTEOPOROSIS
     Dosage: 20, SUBCUTANEOUS
     Route: 058
  2. FORTEO [Concomitant]
  3. CALCIUM (CALCIUM) [Concomitant]
  4. ACENODOUMAROL (ACENOCOUMAROL) [Concomitant]
  5. AMLODIPINE [Concomitant]

REACTIONS (4)
  - BLOOD CALCIUM ABNORMAL [None]
  - DRUG INTERACTION [None]
  - HAEMOGLOBIN DECREASED [None]
  - INTERNATIONAL NORMALISED RATIO INCREASED [None]
